FAERS Safety Report 21166495 (Version 1)
Quarter: 2022Q3

REPORT INFORMATION
  Report Type: Spontaneous
  Country: US (occurrence: None)
  Receive Date: 20220802
  Receipt Date: 20220802
  Transmission Date: 20221027
  Serious: Yes (unspecified)
  Sender: FDA-Public Use
  Company Number: None

PATIENT
  Age: 64 Year
  Sex: Female

DRUGS (4)
  1. VOCABRIA [Suspect]
     Active Substance: CABOTEGRAVIR SODIUM
     Dates: start: 20220628, end: 20220701
  2. EDURANT [Suspect]
     Active Substance: RILPIVIRINE HYDROCHLORIDE
     Dates: start: 20220628, end: 20220701
  3. vocabria 30mg [Concomitant]
     Dates: start: 20220628, end: 20220701
  4. EDURANT [Concomitant]
     Active Substance: RILPIVIRINE HYDROCHLORIDE
     Dates: start: 20220628, end: 20220701

REACTIONS (6)
  - Sedation [None]
  - Arthralgia [None]
  - Nightmare [None]
  - Urticaria [None]
  - Feeling abnormal [None]
  - Diarrhoea [None]

NARRATIVE: CASE EVENT DATE: 20220628
